FAERS Safety Report 5131209-X (Version None)
Quarter: 2006Q4

REPORT INFORMATION
  Report Type: 
  Country: None (occurrence: None)
  Receive Date: 20061020
  Receipt Date: 20061006
  Transmission Date: 20070319
  Serious: Yes (Hospitalization, Disabling, Other)
  Sender: FDA-Public Use
  Company Number: PHFR2006GB03020

PATIENT
  Age: 58 Year
  Sex: Male

DRUGS (5)
  1. BACLOFEN [Suspect]
     Indication: MULTIPLE SCLEROSIS
     Dosage: 10 MG, TID
     Route: 048
     Dates: start: 20010622, end: 20060812
  2. CANNABIS [Suspect]
     Dosage: UNK, UNK
     Route: 002
     Dates: start: 20060420, end: 20060812
  3. ADCAL [Concomitant]
     Indication: VITAMIN D DEFICIENCY
     Dosage: 2 DF, QD
     Route: 048
     Dates: start: 20050608
  4. ACETAMINOPHEN W/ CODEINE [Concomitant]
     Indication: PAIN
     Route: 048
     Dates: start: 20010622
  5. RISEDRONATE SODIUM [Concomitant]
     Indication: OSTEOPOROSIS
     Dosage: 35 MG, QW
     Route: 048
     Dates: start: 20050829

REACTIONS (8)
  - ACUTE MYOCARDIAL INFARCTION [None]
  - ASPARTATE AMINOTRANSFERASE INCREASED [None]
  - BLOOD CHOLESTEROL DECREASED [None]
  - BLOOD CREATINE PHOSPHOKINASE INCREASED [None]
  - BLOOD GLUCOSE INCREASED [None]
  - CHEST PAIN [None]
  - HYPOTENSION [None]
  - TROPONIN T INCREASED [None]
